FAERS Safety Report 14126361 (Version 8)
Quarter: 2017Q4

REPORT INFORMATION
  Report Type: Report from Study
  Country: None (occurrence: BR)
  Receive Date: 20171025
  Receipt Date: 20171227
  Transmission Date: 20180321
  Serious: Yes (Death, Hospitalization, Other)
  Sender: FDA-Public Use
  Company Number: BR-ABBVIE-17P-020-2141772-00

PATIENT
  Age: 51 Year
  Sex: Female
  Weight: 69 kg

DRUGS (1)
  1. VENETOCLAX. [Suspect]
     Active Substance: VENETOCLAX
     Indication: PLASMA CELL MYELOMA
     Route: 048
     Dates: start: 20170914, end: 20171018

REACTIONS (10)
  - Cerebrovascular accident [Fatal]
  - Hyperviscosity syndrome [Unknown]
  - Plasma cell myeloma [Unknown]
  - Monoclonal immunoglobulin present [Unknown]
  - Drug ineffective [Unknown]
  - Hospitalisation [Unknown]
  - Cerebrovascular accident [Not Recovered/Not Resolved]
  - Wrong dose [Unknown]
  - Product storage error [Unknown]
  - Anaemia [Unknown]

NARRATIVE: CASE EVENT DATE: 20171129
